FAERS Safety Report 15742484 (Version 2)
Quarter: 2019Q1

REPORT INFORMATION
  Report Type: Spontaneous
  Country: DE (occurrence: DE)
  Receive Date: 20181219
  Receipt Date: 20190111
  Transmission Date: 20190417
  Serious: Yes (Hospitalization)
  Sender: FDA-Public Use
  Company Number: DE-ALLERGAN-1857930US

PATIENT
  Age: 67 Year
  Sex: Male

DRUGS (2)
  1. PANZYTRAT [AMYLASE\LIPASE\PROTEASE] [Suspect]
     Active Substance: AMYLASE\LIPASE\PROTEASE
     Indication: PANCREATIC FAILURE
     Dosage: 1 DF, TID
     Route: 050
  2. RISPERIDONE. [Concomitant]
     Active Substance: RISPERIDONE
     Indication: PRODUCT USED FOR UNKNOWN INDICATION
     Dosage: UNK UNK, UNKNOWN
     Route: 065

REACTIONS (2)
  - Choking [Recovered/Resolved]
  - Incorrect route of product administration [Unknown]
